FAERS Safety Report 21222946 (Version 1)
Quarter: 2022Q3

REPORT INFORMATION
  Report Type: Other
  Country: None (occurrence: JP)
  Receive Date: 20220817
  Receipt Date: 20220817
  Transmission Date: 20221027
  Serious: Yes (Other)
  Sender: FDA-Public Use
  Company Number: JP-Avondale Pharmaceuticals, LLC-2131961

PATIENT
  Age: 46 Year
  Sex: Female

DRUGS (2)
  1. NIACOR [Suspect]
     Active Substance: NIACIN
     Indication: Arthralgia
     Route: 065
  2. THIAMINE [Suspect]
     Active Substance: THIAMINE
     Route: 065

REACTIONS (2)
  - Overdose [Unknown]
  - Anaphylactic shock [Unknown]
